FAERS Safety Report 4872939-4 (Version None)
Quarter: 2006Q1

REPORT INFORMATION
  Report Type: 
  Country: None (occurrence: None)
  Receive Date: 20060105
  Receipt Date: 20050318
  Transmission Date: 20060701
  Serious: Yes (Other)
  Sender: FDA-Public Use
  Company Number: US-BRISTOL-MYERS SQUIBB COMPANY-12907598

PATIENT
  Age: 38 Year
  Sex: Female

DRUGS (2)
  1. SERZONE [Suspect]
     Indication: SLEEP DISORDER
     Dosage: ALSO STARTED DOSE OF 40 MG 3 TIMES DAILY IN 1999
     Dates: start: 19930101
  2. SERZONE [Suspect]
     Indication: DEPRESSION
     Dosage: ALSO STARTED DOSE OF 40 MG 3 TIMES DAILY IN 1999
     Dates: start: 19930101

REACTIONS (7)
  - ANOREXIA [None]
  - ANXIETY [None]
  - CYST [None]
  - GALLBLADDER DISORDER [None]
  - HEPATIC STEATOSIS [None]
  - INSOMNIA [None]
  - RHEUMATOID ARTHRITIS [None]
